FAERS Safety Report 8052160-1 (Version None)
Quarter: 2012Q1

REPORT INFORMATION
  Report Type: 
  Country: None (occurrence: None)
  Receive Date: 20120118
  Receipt Date: 20120111
  Transmission Date: 20120608
  Serious: No
  Sender: FDA-Public Use
  Company Number: US-PFIZER INC-2011313844

PATIENT
  Sex: Female
  Weight: 59.864 kg

DRUGS (7)
  1. ALBUTEROL [Concomitant]
     Indication: DYSPNOEA
     Dosage: UNK
  2. CHANTIX [Suspect]
     Dosage: UNK
     Dates: start: 20111201, end: 20111201
  3. ATROVENT [Concomitant]
     Indication: DYSPNOEA
     Dosage: UNK
  4. CHANTIX [Suspect]
     Indication: SMOKING CESSATION THERAPY
     Dosage: 0.5 MG, UNK
     Route: 048
     Dates: start: 20111201, end: 20111201
  5. LASIX [Concomitant]
     Indication: CARDIAC FAILURE CONGESTIVE
     Dosage: 40 MG, 2X/DAY
     Route: 048
  6. METHADONE [Concomitant]
     Indication: DRUG ABUSE
     Dosage: 95 MG, DAILY
  7. LISINOPRIL [Concomitant]
     Indication: BLOOD PRESSURE ABNORMAL
     Dosage: 2 MG, DAILY

REACTIONS (6)
  - ABDOMINAL DISCOMFORT [None]
  - MALAISE [None]
  - MEMORY IMPAIRMENT [None]
  - FATIGUE [None]
  - NAUSEA [None]
  - SOMNOLENCE [None]
